FAERS Safety Report 15168769 (Version 3)
Quarter: 2018Q3

REPORT INFORMATION
  Report Type: Report from Study
  Country: None (occurrence: NL)
  Receive Date: 20180720
  Receipt Date: 20180817
  Transmission Date: 20181010
  Serious: Yes (Death, Life-Threatening, Hospitalization)
  Sender: FDA-Public Use
  Company Number: NL-ABBVIE-18P-114-2421664-00

PATIENT
  Age: 75 Year
  Sex: Male

DRUGS (3)
  1. DUODOPA [Suspect]
     Active Substance: CARBIDOPA\LEVODOPA
     Indication: PARKINSON^S DISEASE
     Route: 050
     Dates: start: 20180625, end: 201807
  2. CLOZAPINE. [Concomitant]
     Active Substance: CLOZAPINE
     Indication: RESTLESSNESS
     Route: 065
  3. ENTACAPONE. [Concomitant]
     Active Substance: ENTACAPONE
     Indication: PRODUCT USED FOR UNKNOWN INDICATION
     Route: 065

REACTIONS (9)
  - Fluid intake reduced [Not Recovered/Not Resolved]
  - Confusional state [Not Recovered/Not Resolved]
  - Death [Fatal]
  - Feeling abnormal [Unknown]
  - Feeding disorder [Not Recovered/Not Resolved]
  - Terminal state [Not Recovered/Not Resolved]
  - Aggression [Not Recovered/Not Resolved]
  - Impulse-control disorder [Not Recovered/Not Resolved]
  - Somnolence [Not Recovered/Not Resolved]

NARRATIVE: CASE EVENT DATE: 2018
